FAERS Safety Report 11639704 (Version 2)
Quarter: 2015Q4

REPORT INFORMATION
  Report Type: Spontaneous
  Country: JP (occurrence: JP)
  Receive Date: 20151019
  Receipt Date: 20151215
  Transmission Date: 20160304
  Serious: Yes (Other)
  Sender: FDA-Public Use
  Company Number: JP-ROCHE-1647842

PATIENT
  Age: 60 Year
  Sex: Female

DRUGS (1)
  1. RITUXAN [Suspect]
     Active Substance: RITUXIMAB
     Indication: RENAL TRANSPLANT
     Route: 065

REACTIONS (1)
  - Haemolytic anaemia [Recovered/Resolved]
